FAERS Safety Report 8932224 (Version 3)
Quarter: 2013Q2

REPORT INFORMATION
  Report Type: Spontaneous
  Country: US (occurrence: US)
  Receive Date: 20121128
  Receipt Date: 20130517
  Transmission Date: 20140414
  Serious: No
  Sender: FDA-Public Use
  Company Number: US-009507513-1211USA010857

PATIENT
  Sex: Female
  Weight: 72.56 kg

DRUGS (1)
  1. IMPLANON [Suspect]
     Dosage: UNK
     Route: 059
     Dates: start: 20110923, end: 20121113

REACTIONS (7)
  - Device breakage [Recovered/Resolved]
  - Product quality issue [Unknown]
  - Medical device complication [Recovered/Resolved]
  - Nausea [Recovered/Resolved]
  - Device deployment issue [Recovered/Resolved]
  - Device dislocation [Recovered/Resolved]
  - Device kink [Recovered/Resolved]
